FAERS Safety Report 13655027 (Version 4)
Quarter: 2018Q1

REPORT INFORMATION
  Report Type: Spontaneous
  Country: CA (occurrence: CA)
  Receive Date: 20170615
  Receipt Date: 20180328
  Transmission Date: 20180508
  Serious: Yes (Death, Other)
  Sender: FDA-Public Use
  Company Number: CA-PFIZER INC-2017134518

PATIENT
  Age: 80 Year
  Sex: Female

DRUGS (11)
  1. APO-HYDRO [Concomitant]
     Active Substance: HYDROCHLOROTHIAZIDE
     Dosage: 25 MG, UNK
  2. LINAGLIPTIN [Concomitant]
     Active Substance: LINAGLIPTIN
     Dosage: 5 MG, UNK
  3. LANTUS [Concomitant]
     Active Substance: INSULIN GLARGINE
     Dosage: 45 IU (UN), UNK
  4. METFORMIN [Concomitant]
     Active Substance: METFORMIN HYDROCHLORIDE
     Dosage: 500 MG, UNK
  5. SYNTHROID [Concomitant]
     Active Substance: LEVOTHYROXINE SODIUM
     Dosage: 88 UG (MCG), UNK
  6. FASLODEX [Concomitant]
     Active Substance: FULVESTRANT
     Dosage: UNK
  7. IBRANCE [Suspect]
     Active Substance: PALBOCICLIB
     Indication: BREAST CANCER METASTATIC
     Dosage: 100 MG, CYCLIC (21 DAYS ON AND 7 OFF)
     Dates: start: 20170418
  8. IBRANCE [Interacting]
     Active Substance: PALBOCICLIB
     Dosage: 125 MG, (21 DAYS ON, 7 DAYS OFF)
     Dates: end: 201705
  9. NOVORAPID [Concomitant]
     Active Substance: INSULIN ASPART
     Dosage: 50/50-25, UNIT UNKNOWN, A.M
  10. ATENOLOL. [Concomitant]
     Active Substance: ATENOLOL
     Dosage: 100 MG, UNK
  11. SIMVASTATIN. [Concomitant]
     Active Substance: SIMVASTATIN
     Dosage: 40 MG, 1X/DAY

REACTIONS (4)
  - Death [Fatal]
  - Seizure [Unknown]
  - Neoplasm progression [Unknown]
  - Drug interaction [Unknown]
